FAERS Safety Report 14693474 (Version 4)
Quarter: 2018Q2

REPORT INFORMATION
  Report Type: Spontaneous
  Country: JP (occurrence: JP)
  Receive Date: 20180329
  Receipt Date: 20180627
  Transmission Date: 20180711
  Serious: Yes (Other)
  Sender: FDA-Public Use
  Company Number: JP-B.I. PHARMACEUTICALS,INC./RIDGEFIELD-2018-NB-001587

PATIENT
  Age: 66 Year
  Sex: Female
  Weight: 51 kg

DRUGS (13)
  1. GLACTIV [Concomitant]
     Active Substance: SITAGLIPTIN
     Indication: DIABETES MELLITUS
     Route: 048
     Dates: start: 201706
  2. DILTIAZEM HYDROCHLORIDE. [Concomitant]
     Active Substance: DILTIAZEM HYDROCHLORIDE
     Indication: AORTIC VALVE STENOSIS
     Route: 048
     Dates: start: 201512
  3. LIPITOR [Concomitant]
     Active Substance: ATORVASTATIN CALCIUM
     Indication: TYPE IIA HYPERLIPIDAEMIA
     Route: 048
     Dates: start: 2009
  4. NICORANDIL [Concomitant]
     Active Substance: NICORANDIL
     Indication: AORTIC VALVE STENOSIS
     Route: 048
     Dates: start: 201702
  5. EPADEL [Concomitant]
     Active Substance: ICOSAPENT
     Indication: TYPE IIA HYPERLIPIDAEMIA
     Route: 048
     Dates: start: 201503
  6. LANTUS XR [Concomitant]
     Active Substance: INSULIN GLARGINE
     Indication: DIABETES MELLITUS
     Route: 058
     Dates: start: 201706
  7. GASTER [Concomitant]
     Active Substance: FAMOTIDINE
     Indication: AORTIC VALVE STENOSIS
     Route: 048
     Dates: start: 2010
  8. MAINTATE [Concomitant]
     Active Substance: BISOPROLOL FUMARATE
     Indication: AORTIC VALVE STENOSIS
     Route: 048
     Dates: start: 201706
  9. CLOPIDOGREL [Concomitant]
     Active Substance: CLOPIDOGREL BISULFATE
     Indication: AORTIC VALVE STENOSIS
     Route: 048
     Dates: start: 201706
  10. JARDIANCE [Suspect]
     Active Substance: EMPAGLIFLOZIN
     Indication: DIABETES MELLITUS
     Route: 048
     Dates: start: 20180214, end: 20180218
  11. ZETIA [Concomitant]
     Active Substance: EZETIMIBE
     Indication: TYPE IIA HYPERLIPIDAEMIA
     Route: 048
     Dates: start: 2009
  12. WARFARIN [Concomitant]
     Active Substance: WARFARIN
     Indication: AORTIC VALVE STENOSIS
     Route: 048
     Dates: start: 201706
  13. HUMALOG [Concomitant]
     Active Substance: INSULIN LISPRO
     Indication: DIABETES MELLITUS
     Route: 058
     Dates: start: 201711

REACTIONS (1)
  - Anaphylactic reaction [Recovering/Resolving]

NARRATIVE: CASE EVENT DATE: 20180217
